FAERS Safety Report 15804556 (Version 2)
Quarter: 2019Q1

REPORT INFORMATION
  Report Type: Report from Study
  Country: GB (occurrence: GB)
  Receive Date: 20190109
  Receipt Date: 20190207
  Transmission Date: 20190417
  Serious: Yes (Hospitalization)
  Sender: FDA-Public Use
  Company Number: PHHY2019GB001579

PATIENT
  Sex: Male

DRUGS (1)
  1. COSENTYX [Suspect]
     Active Substance: SECUKINUMAB
     Indication: ANKYLOSING SPONDYLITIS
     Dosage: 150 MG, QW (ON WEEKS 0, 1, 2 , 3 AND THEN ONCE MONTHLY)
     Route: 058
     Dates: start: 20181206

REACTIONS (2)
  - Scar [Unknown]
  - Pain [Unknown]
